FAERS Safety Report 17136473 (Version 3)
Quarter: 2020Q4

REPORT INFORMATION
  Report Type: Spontaneous
  Country: US (occurrence: US)
  Receive Date: 20191210
  Receipt Date: 20201214
  Transmission Date: 20210113
  Serious: No
  Sender: FDA-Public Use
  Company Number: US-SA-2019SA338560

PATIENT

DRUGS (1)
  1. DUPIXENT [Suspect]
     Active Substance: DUPILUMAB
     Dosage: 300 MG, QOW
     Route: 058
     Dates: start: 20191024, end: 20201205

REACTIONS (3)
  - Condition aggravated [Not Recovered/Not Resolved]
  - Condition aggravated [Recovering/Resolving]
  - Eye disorder [Recovering/Resolving]

NARRATIVE: CASE EVENT DATE: 20201205
